FAERS Safety Report 6847720-7 (Version None)
Quarter: 2010Q3

REPORT INFORMATION
  Report Type: 
  Country: None (occurrence: None)
  Receive Date: 20100716
  Receipt Date: 20100708
  Transmission Date: 20110219
  Serious: Yes (Hospitalization, Other)
  Sender: FDA-Public Use
  Company Number: PHHY2010BR43836

PATIENT
  Sex: Female

DRUGS (5)
  1. TRILEPTAL [Suspect]
     Indication: PARTIAL SEIZURES
     Dosage: 0.5 TABLET (300 MG) IN THE MORNING AND 1 TABLET (300 MG) AT NIGHT
     Route: 048
     Dates: start: 20080424
  2. TRILEPTAL [Suspect]
     Dosage: 1 TABLET (300 MG), BID
     Route: 048
  3. TRILEPTAL [Suspect]
     Dosage: 0.5 TABLET (600 MG) IN THE MORNING AND 1 TABLET (600 MG) AT NIGHT
     Route: 048
  4. TRILEPTAL [Suspect]
     Dosage: 1 TABLET (600 MG), BID
  5. SPEDIFEN [Concomitant]
     Dosage: 1 TABLET BID
     Route: 048
     Dates: start: 20091001

REACTIONS (7)
  - CONVULSION [None]
  - DARK CIRCLES UNDER EYES [None]
  - DRUG LEVEL DECREASED [None]
  - MENORRHAGIA [None]
  - PETIT MAL EPILEPSY [None]
  - SOMNOLENCE [None]
  - STARING [None]
